FAERS Safety Report 7199158-3 (Version None)
Quarter: 2010Q4

REPORT INFORMATION
  Report Type: 
  Country: None (occurrence: None)
  Receive Date: 20101223
  Receipt Date: 20101223
  Transmission Date: 20110411
  Serious: Yes (Hospitalization)
  Sender: FDA-Public Use
  Company Number: None

PATIENT
  Age: 86 Year
  Sex: Male

DRUGS (2)
  1. GLYBURIDE [Suspect]
     Indication: DIABETES MELLITUS
     Dosage: 10 MG BID PO
     Route: 048
     Dates: start: 20091129, end: 20101221
  2. METFORMIN [Suspect]
     Indication: DIABETES MELLITUS
     Dosage: 250 MG BID PO
     Route: 048
     Dates: start: 20091023

REACTIONS (5)
  - ASTHENIA [None]
  - DIZZINESS [None]
  - FALL [None]
  - HYPOGLYCAEMIA UNAWARENESS [None]
  - HYPOPHAGIA [None]
